FAERS Safety Report 15343150 (Version 1)
Quarter: 2018Q3

REPORT INFORMATION
  Report Type: Spontaneous
  Country: US (occurrence: US)
  Receive Date: 20180903
  Receipt Date: 20180903
  Transmission Date: 20181010
  Serious: Yes (Life-Threatening, Hospitalization, Other)
  Sender: FDA-Public Use
  Company Number: US-AUROBINDO-AUR-APL-2018-043719

PATIENT
  Age: 52 Year
  Sex: Male

DRUGS (16)
  1. DESFLURANE. [Suspect]
     Active Substance: DESFLURANE
     Indication: MAINTENANCE OF ANAESTHESIA
     Dosage: UNK
     Route: 065
  2. ROCURONIUM BROMIDE. [Suspect]
     Active Substance: ROCURONIUM BROMIDE
     Dosage: 140 MILLIGRAM,AROUND 4:10 PM; FLOW RATE OF DESFLURANE WAS DECREASED TO 5.5% BY 4:15 PM
     Route: 042
  3. EPINEPHRINE. [Suspect]
     Active Substance: EPINEPHRINE
     Indication: GENERAL ANAESTHESIA
     Dosage: 1:100,000
     Route: 065
  4. SUCCINYLCHOLINE CHLORIDE. [Suspect]
     Active Substance: SUCCINYLCHOLINE CHLORIDE
     Indication: INDUCTION OF ANAESTHESIA
     Dosage: 120 MILLIGRAM
     Route: 042
  5. LIDOCAINE 20MG/ML [Suspect]
     Active Substance: LIDOCAINE
     Indication: GENERAL ANAESTHESIA
     Dosage: 9 MILLILITER,IN TOTAL
     Route: 065
  6. PROPOFOL. [Suspect]
     Active Substance: PROPOFOL
     Indication: INDUCTION OF ANAESTHESIA
     Dosage: 200 MILLIGRAM
     Route: 042
  7. LISINOPRIL. [Concomitant]
     Active Substance: LISINOPRIL
     Indication: PRODUCT USED FOR UNKNOWN INDICATION
     Dosage: UNK
     Route: 065
  8. FENTANYL. [Suspect]
     Active Substance: FENTANYL
     Indication: INDUCTION OF ANAESTHESIA
     Dosage: 150 MILLIGRAM
     Route: 042
  9. METFORMIN [Concomitant]
     Active Substance: METFORMIN HYDROCHLORIDE
     Indication: PRODUCT USED FOR UNKNOWN INDICATION
     Dosage: UNK
     Route: 065
  10. REGLAN [Concomitant]
     Active Substance: METOCLOPRAMIDE HYDROCHLORIDE
     Indication: PRODUCT USED FOR UNKNOWN INDICATION
     Dosage: 10 MILLIGRAM
     Route: 042
  11. MIDAZOLAM [Suspect]
     Active Substance: MIDAZOLAM HYDROCHLORIDE
     Indication: INDUCTION OF ANAESTHESIA
     Dosage: 2 MILLIGRAM
     Route: 042
  12. RANITIDINE. [Concomitant]
     Active Substance: RANITIDINE
     Indication: PRODUCT USED FOR UNKNOWN INDICATION
     Dosage: 50 MILLIGRAM
     Route: 042
  13. FENTANYL. [Suspect]
     Active Substance: FENTANYL
     Dosage: 150 MILLIGRAM,ADMINISTERED AROUND 4:15 PM
     Route: 042
  14. DECADRON [Concomitant]
     Active Substance: DEXAMETHASONE
     Indication: PRODUCT USED FOR UNKNOWN INDICATION
     Dosage: 8 MILLIGRAM,ADMINISTERED AT 4:45 PM
     Route: 042
  15. CEFAZOLIN [Concomitant]
     Active Substance: CEFAZOLIN
     Indication: PRODUCT USED FOR UNKNOWN INDICATION
     Dosage: 1 GRAM,ADMINISTERED AT 4:20 PM
     Route: 042
  16. ROCURONIUM BROMIDE. [Suspect]
     Active Substance: ROCURONIUM BROMIDE
     Indication: INDUCTION OF ANAESTHESIA
     Dosage: 5 MILLIGRAM
     Route: 042

REACTIONS (2)
  - Hyperthermia malignant [Recovered/Resolved]
  - Rhabdomyolysis [Recovering/Resolving]
